FAERS Safety Report 10528832 (Version 1)
Quarter: 2014Q4

REPORT INFORMATION
  Report Type: Spontaneous
  Country: SE (occurrence: SE)
  Receive Date: 20141020
  Receipt Date: 20141020
  Transmission Date: 20150528
  Serious: Yes (Life-Threatening, Hospitalization)
  Sender: FDA-Public Use
  Company Number: SE-PFIZER INC-2014285559

PATIENT
  Age: 70 Year
  Sex: Female

DRUGS (16)
  1. ALVEDON [Concomitant]
     Active Substance: ACETAMINOPHEN
     Dosage: 665 MG, UNK
  2. SYMBICORT [Concomitant]
     Active Substance: BUDESONIDE\FORMOTEROL FUMARATE DIHYDRATE
     Dosage: 160 MICROGRAM/4.5 MICROGRAM
  3. FORLAX [Concomitant]
     Active Substance: POLYETHYLENE GLYCOL 4000
     Dosage: 10 G, UNK
  4. MORFIN MEDA [Suspect]
     Active Substance: MORPHINE SULFATE
     Indication: BACK PAIN
     Dosage: 10-20 MG AS NEEDED
     Route: 048
     Dates: start: 20140918, end: 20140919
  5. SALURES [Concomitant]
     Active Substance: BENDROFLUMETHIAZIDE
     Dosage: 5 MG, UNK
  6. AMLODIPINE [Concomitant]
     Active Substance: AMLODIPINE BESYLATE
     Dosage: 5 MG, UNK
  7. MODIODAL [Concomitant]
     Active Substance: MODAFINIL
     Dosage: 100 MG, UNK
  8. HIPREX [Concomitant]
     Active Substance: METHENAMINE HIPPURATE
     Dosage: 1 G, UNK
  9. LYRICA [Concomitant]
     Active Substance: PREGABALIN
     Dosage: 50 MG, UNK
  10. DOLCONTIN [Suspect]
     Active Substance: MORPHINE
     Dosage: 30 MG, 3X/DAY
     Route: 048
     Dates: start: 20140918, end: 20140919
  11. CITALOPRAM BLUEFISH [Concomitant]
     Dosage: 20 MG, UNK
  12. PREDNISOLON PFIZER [Concomitant]
     Active Substance: PREDNISOLONE
     Dosage: 5 MG, UNK
  13. VISCOTEARS [Concomitant]
     Active Substance: CARBOMER
     Dosage: 2 MG/G
  14. DOLCONTIN [Suspect]
     Active Substance: MORPHINE
     Indication: BACK PAIN
     Dosage: 5 MG, 3X/DAY
  15. CALCICHEW-D3 CITRON [Concomitant]
     Dosage: 500 MG/400 IU
  16. LANSOPRAZOLE KRKA [Concomitant]
     Dosage: 30 MG, UNK

REACTIONS (5)
  - Depressed level of consciousness [None]
  - Pneumonia [None]
  - Cough [None]
  - Hypotension [None]
  - Toxicity to various agents [Unknown]

NARRATIVE: CASE EVENT DATE: 20140919
